FAERS Safety Report 24849085 (Version 1)
Quarter: 2025Q1

REPORT INFORMATION
  Report Type: Spontaneous
  Country: PL (occurrence: PL)
  Receive Date: 20250116
  Receipt Date: 20250116
  Transmission Date: 20250408
  Serious: Yes (Death, Hospitalization, Other)
  Sender: Steriscience PTE
  Company Number: PL-STERISCIENCE B.V.-2025-ST-000030

PATIENT
  Age: 61 Year
  Sex: Male

DRUGS (2)
  1. AMPICILLIN [Suspect]
     Active Substance: AMPICILLIN
     Indication: Listeria encephalitis
     Route: 042
  2. CEFTAZIDIME [Suspect]
     Active Substance: CEFTAZIDIME
     Indication: Listeria encephalitis
     Route: 042

REACTIONS (1)
  - Condition aggravated [Fatal]
